FAERS Safety Report 5404674-8 (Version None)
Quarter: 2007Q3

REPORT INFORMATION
  Report Type: 
  Country: None (occurrence: None)
  Receive Date: 20070731
  Receipt Date: 20070723
  Transmission Date: 20080115
  Serious: Yes (Other)
  Sender: FDA-Public Use
  Company Number: E3810-01096-SPO-DE

PATIENT
  Age: 69 Year
  Sex: Female
  Weight: 95 kg

DRUGS (1)
  1. RABEPRAZOLE SODIUM [Suspect]
     Indication: REFLUX OESOPHAGITIS
     Dosage: 10 MG, 1 IN 1 D, ORAL
     Route: 048
     Dates: start: 20070705, end: 20070709

REACTIONS (4)
  - CONJUNCTIVITIS [None]
  - DRUG INTOLERANCE [None]
  - HEADACHE [None]
  - SKIN EXFOLIATION [None]
